FAERS Safety Report 8849576 (Version 1)
Quarter: 2012Q4

REPORT INFORMATION
  Report Type: 
  Country: US (occurrence: US)
  Receive Date: 20121019
  Receipt Date: 20121019
  Transmission Date: 20130627
  Serious: No
  Sender: FDA-Public Use
  Company Number: US-009507513-1210USA004436

PATIENT
  Sex: Female

DRUGS (3)
  1. PEGINTRON [Suspect]
     Indication: HEPATITIS C
     Dosage: 96 mcg (0.4 mL} weekly
     Route: 058
     Dates: start: 20120404, end: 20121003
  2. RIBAPAK [Suspect]
     Dosage: UNK
     Dates: end: 20121003
  3. TELAPREVIR [Suspect]
     Dosage: UNK
     Dates: end: 20121003

REACTIONS (2)
  - Drug ineffective [Unknown]
  - Hepatitis C [Unknown]
